FAERS Safety Report 10030805 (Version 2)
Quarter: 2014Q1

REPORT INFORMATION
  Report Type: Spontaneous
  Country: US (occurrence: US)
  Receive Date: 20140323
  Receipt Date: 20140323
  Transmission Date: 20141002
  Serious: No
  Sender: FDA-Public Use
  Company Number: US-ALLERGAN-1313688US

PATIENT
  Age: 35 Year
  Sex: Female
  Weight: 58.96 kg

DRUGS (2)
  1. LATISSE 0.03% [Suspect]
     Indication: GROWTH OF EYELASHES
     Dosage: 1 DROP IN EACH EYE ONCE DAILY
     Route: 061
     Dates: start: 20091001, end: 20130730
  2. SERTRALINE [Concomitant]
     Indication: ANXIETY

REACTIONS (3)
  - Trichiasis [Not Recovered/Not Resolved]
  - Ingrown hair [Not Recovered/Not Resolved]
  - Hair growth abnormal [Not Recovered/Not Resolved]
